FAERS Safety Report 10221583 (Version 1)
Quarter: 2014Q1

REPORT INFORMATION
  Report Type: Spontaneous
  Country: US (occurrence: None)
  Receive Date: 20140306
  Receipt Date: 20140306
  Transmission Date: 20141002
  Serious: Yes (Hospitalization)
  Sender: FDA-Public Use
  Company Number: 163-21880-13101690

PATIENT
  Age: 82 Year
  Sex: Female

DRUGS (13)
  1. REVLIMID (LENALIDOMIDE) (25 MILLIGRAM, CAPSULES) [Suspect]
     Indication: PLASMA CELL MYELOMA
     Route: 048
     Dates: start: 201004
  2. PHENERGAN(PROMETHAZINE HYDROCHLORIDE)(TABLETS) [Concomitant]
  3. LYRICA(PREGABALIN)(CAPSULES) [Concomitant]
  4. ATENOLOL(ATENOLOL)(TABLETS) [Concomitant]
  5. ASPIRIN(ACETYLSALICYLIC ACID)(CHEWABLE TABLET) [Concomitant]
  6. MILK OF MAGNESIA (MAGNESIUM HYDROXIDE) [Concomitant]
  7. OXYCODONE HCL (OXYCODONE HYDROCHLORIDE)(TABLETS) [Concomitant]
  8. VITAMIN C (ASCORBIC ACID)(CAPSULES) [Concomitant]
  9. BENICAR(OLMESARTAN MEDOXOMIL)(TABLETS) [Concomitant]
  10. MAGNESIUM(MAGNESIUM) [Concomitant]
  11. AMBIEN(ZOLPIDEM TARTRATE) [Concomitant]
  12. PLAVIX(CLOPIDOGREL SULFATE) [Concomitant]
  13. VITAMIN D3(COLECALCIFEROL) [Concomitant]

REACTIONS (1)
  - Dyspnoea [None]
